FAERS Safety Report 7793293-4 (Version None)
Quarter: 2011Q4

REPORT INFORMATION
  Report Type: 
  Country: None (occurrence: None)
  Receive Date: 20111003
  Receipt Date: 20110926
  Transmission Date: 20120403
  Serious: Yes (Other)
  Sender: FDA-Public Use
  Company Number: US-US-EMD SERONO, INC.-7086058

PATIENT
  Sex: Female

DRUGS (1)
  1. REBIF [Suspect]
     Indication: MULTIPLE SCLEROSIS
     Route: 058
     Dates: start: 20110719

REACTIONS (5)
  - MOOD ALTERED [None]
  - INTENTIONAL SELF-INJURY [None]
  - LIMB DISCOMFORT [None]
  - SEXUAL DYSFUNCTION [None]
  - EMOTIONAL DISORDER [None]
